FAERS Safety Report 6332879-0 (Version None)
Quarter: 2009Q3

REPORT INFORMATION
  Report Type: 
  Country: None (occurrence: None)
  Receive Date: 20090828
  Receipt Date: 20090820
  Transmission Date: 20100115
  Serious: Yes (Hospitalization)
  Sender: FDA-Public Use
  Company Number: US-ELI_LILLY_AND_COMPANY-US200908005945

PATIENT
  Sex: Female
  Weight: 86.757 kg

DRUGS (9)
  1. BYETTA [Suspect]
     Dates: start: 20060101
  2. BYETTA [Suspect]
     Dosage: 5 UG, 2/D
     Route: 058
     Dates: start: 20070101
  3. BYETTA [Suspect]
     Dosage: 10 UG, 2/D
     Route: 058
     Dates: start: 20070101
  4. CARDIZEM [Concomitant]
     Indication: BLOOD PRESSURE
  5. ESTROGEN NOS [Concomitant]
     Dosage: UNK, 2/W
     Route: 061
  6. TESTOSTERONE [Concomitant]
     Route: 061
  7. LANTUS [Concomitant]
     Indication: DIABETES MELLITUS
     Dosage: UNK, EACH MORNING
  8. HUMALOG [Concomitant]
     Indication: DIABETES MELLITUS
  9. LEVEMIR [Concomitant]

REACTIONS (12)
  - BLOOD GLUCOSE INCREASED [None]
  - BLOOD PRESSURE INCREASED [None]
  - DRUG INEFFECTIVE [None]
  - GLYCOSYLATED HAEMOGLOBIN INCREASED [None]
  - INTERVERTEBRAL DISC PROTRUSION [None]
  - LARYNGITIS [None]
  - OFF LABEL USE [None]
  - PAIN [None]
  - ROAD TRAFFIC ACCIDENT [None]
  - STRESS [None]
  - WEIGHT DECREASED [None]
  - WEIGHT INCREASED [None]
